FAERS Safety Report 4385090-7 (Version None)
Quarter: 2004Q2

REPORT INFORMATION
  Report Type: 
  Country: None (occurrence: None)
  Receive Date: 20040624
  Receipt Date: 20040624
  Transmission Date: 20050107
  Serious: Yes (Other)
  Sender: FDA-Public Use
  Company Number: None

PATIENT
  Sex: Female

DRUGS (3)
  1. ZIPRASIDONE 40 MG [Suspect]
     Indication: BIPOLAR DISORDER
     Dosage: 40 MG HS ORAL
     Route: 048
     Dates: start: 20040211, end: 20040305
  2. LORAZEPAM [Concomitant]
  3. VENLAFAXINE [Concomitant]

REACTIONS (2)
  - MUSCLE CONTRACTIONS INVOLUNTARY [None]
  - TONGUE DISORDER [None]
